FAERS Safety Report 5371338-9 (Version None)
Quarter: 2007Q2

REPORT INFORMATION
  Report Type: 
  Country: None (occurrence: None)
  Receive Date: 20070615
  Receipt Date: 20060718
  Transmission Date: 20071010
  Serious: Yes (Other)
  Sender: FDA-Public Use
  Company Number: 200616006US

PATIENT
  Age: 69 Year
  Sex: Female
  Weight: 113.6 kg

DRUGS (13)
  1. LANTUS [Suspect]
     Indication: DIABETES MELLITUS
     Dosage: 80-90 U
     Dates: end: 20060701
  2. LANTUS [Suspect]
     Indication: DIABETES MELLITUS
     Dosage: 180-200 U
  3. HUMALOG [Concomitant]
  4. ATORVASTATIN CALCIUM (LIPITOR) [Concomitant]
  5. NORVASC [Concomitant]
  6. METFORMIN HCL [Concomitant]
  7. ASPIRIN [Concomitant]
  8. TOPROL-XL [Concomitant]
  9. WELLBUTRIN [Concomitant]
  10. ENALAPRIL MALEATE [Concomitant]
  11. THYROID TAB [Concomitant]
  12. TIMOLOL MALEATE [Concomitant]
  13. TIMOLOL MALEATE, DORZOLAMIDE HYDROCHLORIDE (COSOPT) [Concomitant]

REACTIONS (10)
  - ASTHENIA [None]
  - BLOOD GLUCOSE DECREASED [None]
  - DISORIENTATION [None]
  - DIZZINESS [None]
  - HYPOGLYCAEMIA [None]
  - HYPOTHYROIDISM [None]
  - NERVOUSNESS [None]
  - NIGHTMARE [None]
  - VISUAL ACUITY REDUCED [None]
  - WEIGHT DECREASED [None]
